FAERS Safety Report 5962308-8 (Version None)
Quarter: 2008Q4

REPORT INFORMATION
  Report Type: 
  Country: None (occurrence: None)
  Receive Date: 20081119
  Receipt Date: 20080917
  Transmission Date: 20090506
  Serious: No
  Sender: FDA-Public Use
  Company Number: WAES 0809USA02690

PATIENT
  Age: 25 Year
  Sex: Female

DRUGS (3)
  1. JANUVIA [Suspect]
     Dosage: PO
     Route: 048
     Dates: start: 20080911, end: 20080916
  2. ALTACE [Concomitant]
  3. METFORMIN HCL [Concomitant]

REACTIONS (4)
  - COLD SWEAT [None]
  - INFLUENZA LIKE ILLNESS [None]
  - OROPHARYNGEAL PAIN [None]
  - PAIN [None]
